FAERS Safety Report 8500312-6 (Version None)
Quarter: 2012Q3

REPORT INFORMATION
  Report Type: 
  Country: None (occurrence: None)
  Receive Date: 20120710
  Receipt Date: 20120702
  Transmission Date: 20120928
  Serious: Yes (Other)
  Sender: FDA-Public Use
  Company Number: US-JNJFOC-20120512800

PATIENT
  Sex: Female
  Weight: 72.58 kg

DRUGS (10)
  1. AMLODIPINE [Concomitant]
     Indication: BLOOD PRESSURE
     Route: 048
  2. RYTHMOL [Concomitant]
     Indication: HEART RATE
     Route: 048
     Dates: start: 20110801
  3. VITAMINS NOS [Concomitant]
  4. MELATONIN [Concomitant]
  5. XARELTO [Suspect]
     Indication: CEREBROVASCULAR ACCIDENT PROPHYLAXIS
     Route: 048
     Dates: start: 20120509, end: 20120512
  6. XARELTO [Suspect]
     Indication: ATRIAL FIBRILLATION
     Route: 048
     Dates: start: 20120509, end: 20120512
  7. ATENOLOL [Concomitant]
     Indication: CARDIAC DISORDER
     Route: 048
  8. LEVOTHYROXINE SODIUM [Concomitant]
     Indication: HYPOTHYROIDISM
     Route: 048
  9. PRADAXA [Concomitant]
  10. ATENOLOL [Concomitant]
     Indication: BLOOD PRESSURE
     Route: 048

REACTIONS (6)
  - MALAISE [None]
  - FATIGUE [None]
  - NAUSEA [None]
  - DIZZINESS [None]
  - VERTIGO [None]
  - ASTHENIA [None]
